FAERS Safety Report 4445922-0 (Version None)
Quarter: 2004Q3

REPORT INFORMATION
  Report Type: 
  Country: None (occurrence: None)
  Receive Date: 20040908
  Receipt Date: 20040908
  Transmission Date: 20050211
  Serious: Yes (Hospitalization)
  Sender: FDA-Public Use
  Company Number: None

PATIENT
  Age: 68 Year
  Sex: Male

DRUGS (7)
  1. FUROSEMIDE [Suspect]
     Indication: HYPERTENSION
     Dosage: 40 MG QD
     Dates: start: 20011101
  2. LISINOPRIL [Suspect]
     Indication: HYPERTENSION
     Dosage: 20 MG QAM. 10 MG QPM
     Dates: start: 20011101
  3. METOPROLOL [Concomitant]
  4. SERTRALINE HCL [Concomitant]
  5. OMEPRAZOLE [Concomitant]
  6. SALSALATE [Concomitant]
  7. TERAZOSIN HCL [Concomitant]

REACTIONS (1)
  - SYNCOPE [None]
